FAERS Safety Report 12233309 (Version 4)
Quarter: 2016Q2

REPORT INFORMATION
  Report Type: Spontaneous
  Country: IT (occurrence: IT)
  Receive Date: 20160404
  Receipt Date: 20160509
  Transmission Date: 20160815
  Serious: Yes (Hospitalization)
  Sender: FDA-Public Use
  Company Number: IT-ROCHE-1735932

PATIENT
  Age: 43 Year
  Sex: Female

DRUGS (1)
  1. ROCEFIN [Suspect]
     Active Substance: CEFTRIAXONE SODIUM
     Indication: BRONCHITIS CHRONIC
     Dosage: 1 G/3.5 ML POWDER AND SOLVENT,?1 POWDER VIAL + 1 SOLVENT VIAL, 3.5 ML, DAILY
     Route: 030

REACTIONS (2)
  - Coma [Recovered/Resolved]
  - Anaphylactic shock [Recovered/Resolved]

NARRATIVE: CASE EVENT DATE: 20140101
